FAERS Safety Report 5515237-8 (Version None)
Quarter: 2007Q4

REPORT INFORMATION
  Report Type: 
  Country: None (occurrence: None)
  Receive Date: 20071109
  Receipt Date: 20070126
  Transmission Date: 20080405
  Serious: Yes (Disabling, Other)
  Sender: FDA-Public Use
  Company Number: US-ITMN-200509IM00057

PATIENT
  Age: 47 Year
  Sex: Male
  Weight: 94.8018 kg

DRUGS (7)
  1. INTERFERON ALFACON-1 [Suspect]
     Indication: HEPATITIS C
     Dosage: 15 UG;QD; SC
     Route: 058
     Dates: start: 20050810, end: 20060701
  2. RIBAVIRIN [Suspect]
     Indication: HEPATITIS C
     Dosage: SEE IMAGE
     Route: 048
     Dates: start: 20050810, end: 20050101
  3. RIBAVIRIN [Suspect]
     Indication: HEPATITIS C
     Dosage: SEE IMAGE
     Route: 048
     Dates: start: 20050810, end: 20060701
  4. RIBAVIRIN [Suspect]
     Indication: HEPATITIS C
     Dosage: SEE IMAGE
     Route: 048
     Dates: start: 20050810, end: 20060701
  5. RIBAVIRIN [Suspect]
     Indication: HEPATITIS C
     Dosage: SEE IMAGE
     Route: 048
     Dates: start: 20050810, end: 20060701
  6. ZOLOFT [Concomitant]
  7. XANAX [Concomitant]

REACTIONS (19)
  - ANOREXIA [None]
  - ANXIETY [None]
  - ARTHRALGIA [None]
  - ARTHROPATHY [None]
  - ASTHENIA [None]
  - BALANCE DISORDER [None]
  - CONDITION AGGRAVATED [None]
  - CRYOGLOBULINAEMIA [None]
  - DEPRESSION [None]
  - FATIGUE [None]
  - FORMICATION [None]
  - GLAUCOMA [None]
  - INJECTION SITE PAIN [None]
  - MUSCLE SPASMS [None]
  - MYALGIA [None]
  - NERVOUSNESS [None]
  - PLATELET COUNT DECREASED [None]
  - VISUAL DISTURBANCE [None]
  - WEIGHT DECREASED [None]
